FAERS Safety Report 10790453 (Version 4)
Quarter: 2015Q1

REPORT INFORMATION
  Report Type: Report from Study
  Country: US (occurrence: US)
  Receive Date: 20150212
  Receipt Date: 20150326
  Transmission Date: 20150721
  Serious: Yes (Death, Hospitalization)
  Sender: FDA-Public Use
  Company Number: US-EXELIXIS-CABO-14004973

PATIENT
  Age: 68 Year
  Sex: Male

DRUGS (7)
  1. CABOZANTINIB [Suspect]
     Active Substance: CABOZANTINIB
     Dosage: 100 MG, QD
     Route: 048
     Dates: start: 2014, end: 20141202
  2. DEXAMETHASONE. [Concomitant]
     Active Substance: DEXAMETHASONE
  3. FENTANYL. [Concomitant]
     Active Substance: FENTANYL
  4. CABOZANTINIB [Suspect]
     Active Substance: CABOZANTINIB
     Indication: THYROID CANCER
     Dosage: 100 MG, QD
     Route: 048
     Dates: start: 20141001, end: 20141005
  5. MORPHINE [Concomitant]
     Active Substance: MORPHINE
  6. LIDOCAINE. [Concomitant]
     Active Substance: LIDOCAINE
  7. OXYCODONE [Concomitant]
     Active Substance: OXYCODONE

REACTIONS (11)
  - Death [Fatal]
  - Dementia [Unknown]
  - Diarrhoea [Unknown]
  - Fall [Unknown]
  - Hip fracture [Unknown]
  - Rash [Unknown]
  - Metastases to bone [Unknown]
  - Confusional state [Unknown]
  - Blister [Unknown]
  - Skin irritation [Unknown]
  - Skin ulcer [Unknown]

NARRATIVE: CASE EVENT DATE: 20150303
